FAERS Safety Report 11645918 (Version 1)
Quarter: 2015Q4

REPORT INFORMATION
  Report Type: Spontaneous
  Country: US (occurrence: US)
  Receive Date: 20151020
  Receipt Date: 20151020
  Transmission Date: 20160304
  Serious: No
  Sender: FDA-Public Use
  Company Number: US-ROCHE-1600779

PATIENT
  Age: 78 Year
  Sex: Female

DRUGS (10)
  1. ESBRIET [Suspect]
     Active Substance: PIRFENIDONE
     Indication: IDIOPATHIC PULMONARY FIBROSIS
     Dosage: 267 MG THREE TIMES IN A DAY (9 CAPSULES IN A DAY)
     Route: 048
  2. NEXIUM [Concomitant]
     Active Substance: ESOMEPRAZOLE MAGNESIUM
  3. LOSARTAN. [Concomitant]
     Active Substance: LOSARTAN
  4. HYZAAR [Concomitant]
     Active Substance: HYDROCHLOROTHIAZIDE\LOSARTAN POTASSIUM
  5. ESBRIET [Suspect]
     Active Substance: PIRFENIDONE
     Dosage: 267 MG THREE TIMES IN A DAY (9 CAPSULES IN A DAY)
     Route: 048
     Dates: start: 20150605
  6. SPIRIVA [Concomitant]
     Active Substance: TIOTROPIUM BROMIDE MONOHYDRATE
  7. HYDROCHLOROTHIAZIDE. [Concomitant]
     Active Substance: HYDROCHLOROTHIAZIDE
  8. ESBRIET [Suspect]
     Active Substance: PIRFENIDONE
     Dosage: 4-6 CAPSULE PER DAY
     Route: 048
     Dates: end: 20150706
  9. CELEBREX [Concomitant]
     Active Substance: CELECOXIB
  10. PREMARIN [Concomitant]
     Active Substance: ESTROGENS, CONJUGATED

REACTIONS (3)
  - Nausea [Recovering/Resolving]
  - Abdominal discomfort [Unknown]
  - Photosensitivity reaction [Recovering/Resolving]

NARRATIVE: CASE EVENT DATE: 20150629
